FAERS Safety Report 7060523-6 (Version None)
Quarter: 2010Q4

REPORT INFORMATION
  Report Type: 
  Country: None (occurrence: None)
  Receive Date: 20101025
  Receipt Date: 20101012
  Transmission Date: 20110411
  Serious: Yes (Other)
  Sender: FDA-Public Use
  Company Number: US-ELI_LILLY_AND_COMPANY-US201010002772

PATIENT
  Sex: Female

DRUGS (7)
  1. FORTEO [Suspect]
     Indication: OSTEOPOROSIS
     Dosage: UNK, UNKNOWN
     Route: 065
  2. DARVOCET [Concomitant]
  3. LORAZEPAM [Concomitant]
  4. LOVASTATIN [Concomitant]
  5. AMLODIPINE [Concomitant]
  6. METOPROLOL TARTRATE [Concomitant]
  7. FEXOFENADINE HCL [Concomitant]

REACTIONS (2)
  - COMPRESSION FRACTURE [None]
  - METASTASES TO BONE [None]
